FAERS Safety Report 7587561-9 (Version None)
Quarter: 2011Q3

REPORT INFORMATION
  Report Type: 
  Country: None (occurrence: None)
  Receive Date: 20110704
  Receipt Date: 20110620
  Transmission Date: 20111222
  Serious: Yes (Other)
  Sender: FDA-Public Use
  Company Number: PHHY2011US54781

PATIENT
  Sex: Female

DRUGS (5)
  1. DIOVAN HCT [Suspect]
     Dosage: 320 MG VALS AND 12.5 MG HYDR
  2. LEVOXYL [Suspect]
     Dosage: 200 UG,
  3. DIOVAN [Suspect]
     Dosage: 160 MG,
  4. BENICAR HCT [Suspect]
     Dosage: 12.5 MG,
  5. LEVOXYL [Suspect]
     Dosage: 150 UG, UNK

REACTIONS (9)
  - HYPERTHYROIDISM [None]
  - FATIGUE [None]
  - POLLAKIURIA [None]
  - BLOOD PRESSURE INADEQUATELY CONTROLLED [None]
  - HYPERTENSION [None]
  - JOINT INJURY [None]
  - FLUID RETENTION [None]
  - PERTUSSIS [None]
  - OEDEMA PERIPHERAL [None]
